FAERS Safety Report 7551117-4 (Version None)
Quarter: 2011Q2

REPORT INFORMATION
  Report Type: 
  Country: None (occurrence: None)
  Receive Date: 20110616
  Receipt Date: 20080923
  Transmission Date: 20111010
  Serious: Yes (Hospitalization, Other)
  Sender: FDA-Public Use
  Company Number: US-BAYER-200834719NA

PATIENT
  Age: 67 Year
  Sex: Female
  Weight: 53 kg

DRUGS (30)
  1. AMIODARONE HCL [Concomitant]
     Dosage: 150
     Dates: start: 20050706
  2. RED BLOOD CELLS [Concomitant]
     Dosage: 2 UNITS
     Dates: start: 20050706
  3. TRASYLOL [Suspect]
     Indication: MITRAL VALVE REPAIR
     Dosage: LOADING DOSE 200 ML OVER 1 HOUR
     Route: 042
     Dates: start: 20050706, end: 20050706
  4. CELEBREX [Concomitant]
     Dosage: UNK
     Dates: start: 19990101, end: 20020101
  5. CLONAZEPAM [Concomitant]
     Dosage: UNK
     Dates: start: 19920101
  6. SOLU-MEDROL [Concomitant]
     Dosage: 500 MG
     Dates: start: 20050706
  7. CRYOPRECIPITATES [Concomitant]
     Dosage: 1 UNIT
     Dates: start: 20050706
  8. PLASMA [Concomitant]
     Dosage: 4 UNITS
     Dates: start: 20050706
  9. AMICAR [Concomitant]
     Dosage: UNK
     Dates: start: 20050706, end: 20050706
  10. MILRINONE [Concomitant]
     Dosage: UNK
     Dates: start: 20050706
  11. PROTAMINE SULFATE [Concomitant]
     Dosage: 450
  12. LEVOPHED [Concomitant]
     Dosage: 10MG/MIN
     Dates: start: 20050706
  13. TRASYLOL [Suspect]
     Indication: CORONARY ARTERY BYPASS
     Dosage: 200 ML PUMP PRIME
     Route: 050
     Dates: start: 20050706, end: 20050706
  14. TRASYLOL [Suspect]
     Indication: ECHOCARDIOGRAM
     Dosage: 50 ML/HR
     Route: 042
     Dates: start: 20050706
  15. SYNTHROID [Concomitant]
     Dosage: UNK
     Dates: start: 19750101
  16. SEROQUEL [Concomitant]
     Dosage: UNK
  17. VERPAMIL HCL [Concomitant]
     Dosage: 10 MG
     Dates: start: 20050706, end: 20050706
  18. ANCEF [Concomitant]
     Dosage: UNK
     Dates: start: 20050706
  19. LIDOCAINE [Concomitant]
     Dosage: UNK
     Dates: start: 20050706
  20. NORVASC [Concomitant]
     Dosage: UNK
     Dates: start: 20020101, end: 20040101
  21. VANCOMYCIN [Concomitant]
     Dosage: UNK
     Dates: start: 20050706
  22. LODINE [Concomitant]
     Dosage: UNK
     Dates: start: 20030101
  23. SOLU-CORTEF [Concomitant]
     Dosage: 100 MG
     Route: 042
     Dates: start: 20050705
  24. LASIX [Concomitant]
     Dosage: 100MG
     Dates: start: 20050706
  25. INSULIN [Concomitant]
     Dosage: 25 UNITS
     Dates: start: 20050706
  26. PLATELETS [Concomitant]
     Dosage: 2 UNITS
     Dates: start: 20050706
  27. VERSED [Concomitant]
     Dosage: 1 MG
     Route: 042
     Dates: start: 20050705
  28. CYMBALTA [Concomitant]
  29. EPINEPHRINE [Concomitant]
     Dosage: UNK
     Route: 041
     Dates: start: 20050706
  30. HEPARIN [Concomitant]
     Dosage: 50,000
     Dates: start: 20050706

REACTIONS (11)
  - PAIN [None]
  - RENAL FAILURE [None]
  - UNEVALUABLE EVENT [None]
  - INJURY [None]
  - STRESS [None]
  - FEAR OF DEATH [None]
  - EMOTIONAL DISTRESS [None]
  - ANXIETY [None]
  - ANHEDONIA [None]
  - NEPHROPATHY [None]
  - FEAR [None]
